FAERS Safety Report 19240584 (Version 1)
Quarter: 2021Q2

REPORT INFORMATION
  Report Type: Spontaneous
  Country: US (occurrence: US)
  Receive Date: 20210511
  Receipt Date: 20210511
  Transmission Date: 20210717
  Serious: No
  Sender: FDA-Public Use
  Company Number: US-SA-2021SA154233

PATIENT
  Sex: Male

DRUGS (4)
  1. PREDNISONE. [Concomitant]
     Active Substance: PREDNISONE
     Indication: PEMPHIGUS
     Dosage: 40 MG (1?2 WEEKS WITH TAPER)
  2. DUPIXENT [Suspect]
     Active Substance: DUPILUMAB
     Indication: PEMPHIGUS
     Dosage: UNK UNK, 1X (LOADING DOSE)
  3. DUPIXENT [Suspect]
     Active Substance: DUPILUMAB
     Dosage: UNK (HAD 2 MAINTENANCE DOSES)
  4. CLOBETASOL [Concomitant]
     Active Substance: CLOBETASOL
     Indication: PEMPHIGUS
     Dosage: UNK, PRN (TWICE DAILY AS NEEDED)

REACTIONS (1)
  - Off label use [Unknown]
